FAERS Safety Report 7986004-0 (Version None)
Quarter: 2011Q4

REPORT INFORMATION
  Report Type: 
  Country: None (occurrence: None)
  Receive Date: 20111216
  Receipt Date: 20111212
  Transmission Date: 20120403
  Serious: Yes (Death)
  Sender: FDA-Public Use
  Company Number: US-MILLENNIUM PHARMACEUTICALS, INC.-2011-06363

PATIENT

DRUGS (2)
  1. VELCADE [Suspect]
     Indication: MALIGNANT GLIOMA
     Dosage: 1.7 MG/M2, CYCLIC
     Route: 042
  2. TEMODAR [Suspect]
     Indication: MALIGNANT GLIOMA
     Dosage: 75 MG/M2, CYCLIC
     Route: 048

REACTIONS (1)
  - DEATH [None]
